FAERS Safety Report 11965670 (Version 1)
Quarter: 2016Q1

REPORT INFORMATION
  Report Type: Spontaneous
  Country: US (occurrence: None)
  Receive Date: 20160126
  Receipt Date: 20160126
  Transmission Date: 20160526
  Serious: Yes (Hospitalization, Other)
  Sender: FDA-Public Use
  Company Number: None

PATIENT
  Age: 68 Year
  Sex: Female
  Weight: 74.84 kg

DRUGS (7)
  1. CALCIUM WITH VITAMIN D [Concomitant]
     Active Substance: CALCIUM\VITAMIN D
  2. CENTRUM SILVER [Concomitant]
     Active Substance: MINERALS\VITAMINS
  3. FISH OIL [Concomitant]
     Active Substance: FISH OIL
  4. D-3 [Concomitant]
     Active Substance: CHOLECALCIFEROL
  5. RALOXIFENE HCL GENERIC FOR EVISTA [Suspect]
     Active Substance: RALOXIFENE
     Indication: BIOPSY BREAST ABNORMAL
     Dosage: 60MG, 1 TABLET, DAILY, BY MOUTH
     Dates: start: 20140210, end: 20160115
  6. ASA [Concomitant]
     Active Substance: ASPIRIN
  7. RALOXIFENE HCL [Concomitant]
     Active Substance: RALOXIFENE

REACTIONS (3)
  - Cerebral haemorrhage [None]
  - Cerebral thrombosis [None]
  - Intracranial aneurysm [None]

NARRATIVE: CASE EVENT DATE: 20160115
